FAERS Safety Report 6936332-2 (Version None)
Quarter: 2010Q3

REPORT INFORMATION
  Report Type: 
  Country: None (occurrence: None)
  Receive Date: 20100823
  Receipt Date: 20100816
  Transmission Date: 20110219
  Serious: Yes (Other)
  Sender: FDA-Public Use
  Company Number: BR-SANOFI-AVENTIS-2010SA049029

PATIENT
  Sex: Female
  Weight: 62 kg

DRUGS (12)
  1. LANTUS [Suspect]
     Indication: TYPE 2 DIABETES MELLITUS
     Route: 058
  2. AUTOPEN 24 [Suspect]
  3. ASPIRIN [Concomitant]
     Indication: PROMOTION OF PERIPHERAL CIRCULATION
     Route: 048
  4. VITAMIN B COMPLEX CAP [Concomitant]
     Route: 048
  5. DIAZEPAM [Concomitant]
     Indication: SEDATIVE THERAPY
     Route: 048
  6. GINKGO BILOBA [Concomitant]
     Indication: VITAMIN SUPPLEMENTATION
     Route: 048
  7. LOSARTAN POTASSIUM [Concomitant]
     Route: 048
  8. METFORMIN [Concomitant]
     Route: 048
  9. NOVORAPID [Concomitant]
     Route: 058
  10. OMEPRAZOLE [Concomitant]
     Indication: GASTRIC DISORDER
     Route: 048
  11. SERTRALINE HYDROCHLORIDE [Concomitant]
     Indication: DIABETIC NEUROPATHY
     Route: 048
  12. THIOCTACID [Concomitant]
     Indication: DIABETIC NEUROPATHY
     Route: 048

REACTIONS (8)
  - GLAUCOMA [None]
  - HEPATIC STEATOSIS [None]
  - HYPERGLYCAEMIA [None]
  - HYPERHIDROSIS [None]
  - HYPOGLYCAEMIA [None]
  - INJECTION SITE HAEMATOMA [None]
  - RETINAL HAEMORRHAGE [None]
  - TREMOR [None]
